FAERS Safety Report 14199965 (Version 1)
Quarter: 2017Q4

REPORT INFORMATION
  Report Type: Spontaneous
  Country: FR (occurrence: FR)
  Receive Date: 20171117
  Receipt Date: 20171117
  Transmission Date: 20180321
  Serious: Yes (Life-Threatening, Hospitalization)
  Sender: FDA-Public Use
  Company Number: FR-JNJFOC-20171117597

PATIENT
  Age: 81 Year
  Sex: Female

DRUGS (3)
  1. DUROGESIC [Suspect]
     Active Substance: FENTANYL
     Indication: SKIN ULCER
     Route: 062
     Dates: start: 2017, end: 2017
  2. DUROGESIC [Suspect]
     Active Substance: FENTANYL
     Indication: SKIN ULCER
     Route: 062
     Dates: end: 20170504
  3. DAFALGAN CODEINE [Suspect]
     Active Substance: ACETAMINOPHEN\CODEINE PHOSPHATE
     Indication: SKIN ULCER
     Route: 048

REACTIONS (3)
  - Acute respiratory failure [Recovered/Resolved]
  - Overdose [Recovered/Resolved]
  - Hypercapnia [Recovered/Resolved]

NARRATIVE: CASE EVENT DATE: 20170304
